FAERS Safety Report 23305044 (Version 1)
Quarter: 2023Q4

REPORT INFORMATION
  Report Type: Report from Study
  Country: CA (occurrence: CA)
  Receive Date: 20231218
  Receipt Date: 20231218
  Transmission Date: 20240109
  Serious: Yes (Other)
  Sender: FDA-Public Use
  Company Number: CA-JNJFOC-20231225974

PATIENT
  Age: 76 Year
  Sex: Male
  Weight: 94 kg

DRUGS (1)
  1. STELARA [Suspect]
     Active Substance: USTEKINUMAB
     Indication: Colitis ulcerative
     Route: 058

REACTIONS (4)
  - Cataract [Recovering/Resolving]
  - Colitis ulcerative [Unknown]
  - Therapeutic response decreased [Unknown]
  - Off label use [Unknown]
